FAERS Safety Report 7670253-5 (Version None)
Quarter: 2011Q3

REPORT INFORMATION
  Report Type: 
  Country: None (occurrence: None)
  Receive Date: 20110809
  Receipt Date: 20110804
  Transmission Date: 20111222
  Serious: Yes (Hospitalization, Other)
  Sender: FDA-Public Use
  Company Number: AR-AMGEN-ARGSP2011035481

PATIENT
  Age: 53 Year
  Sex: Female
  Weight: 60 kg

DRUGS (3)
  1. ENBREL [Suspect]
     Dosage: UNK
     Dates: start: 20110701
  2. ENBREL [Suspect]
     Indication: RHEUMATOID ARTHRITIS
     Dosage: 50 MG, WEEKLY
     Route: 058
     Dates: start: 20060705, end: 20110501
  3. ATENOLOL [Concomitant]
     Dosage: UNK

REACTIONS (2)
  - UPPER LIMB FRACTURE [None]
  - ROAD TRAFFIC ACCIDENT [None]
